FAERS Safety Report 12427735 (Version 1)
Quarter: 2016Q2

REPORT INFORMATION
  Report Type: Spontaneous
  Country: GB (occurrence: GB)
  Receive Date: 20160602
  Receipt Date: 20160602
  Transmission Date: 20160815
  Serious: Yes (Disabling)
  Sender: FDA-Public Use
  Company Number: GB-ACCORD-040940

PATIENT
  Age: 49 Year
  Sex: Female
  Weight: 76 kg

DRUGS (7)
  1. DUAC [Concomitant]
     Active Substance: BENZOYL PEROXIDE\CLINDAMYCIN PHOSPHATE
     Dosage: APPLY AT NIGHT.
     Dates: start: 20151023
  2. OPTICROM [Concomitant]
     Active Substance: CROMOLYN SODIUM
     Dosage: AS DIRECTED
     Dates: start: 20150622
  3. LYMECYCLINE [Concomitant]
     Active Substance: LYMECYCLINE
     Dates: start: 20150122
  4. NASONEX [Concomitant]
     Active Substance: MOMETASONE FUROATE
     Dosage: BOTH NOSTRILS
     Route: 045
     Dates: start: 20150622
  5. AMITRIPTYLINE [Suspect]
     Active Substance: AMITRIPTYLINE
     Indication: PRODUCT USED FOR UNKNOWN INDICATION
     Dates: start: 20150318
  6. ADAPALENE. [Concomitant]
     Active Substance: ADAPALENE
     Dates: start: 20140630
  7. CETIRIZINE [Concomitant]
     Active Substance: CETIRIZINE HYDROCHLORIDE
     Dates: start: 20140630

REACTIONS (4)
  - Dry throat [Unknown]
  - Peripheral swelling [Unknown]
  - Joint swelling [Recovered/Resolved]
  - Abdominal distension [Unknown]

NARRATIVE: CASE EVENT DATE: 20160507
